FAERS Safety Report 16563318 (Version 2)
Quarter: 2019Q3

REPORT INFORMATION
  Report Type: Report from Study
  Country: US (occurrence: US)
  Receive Date: 20190711
  Receipt Date: 20190726
  Transmission Date: 20191004
  Serious: Yes (Death, Other)
  Sender: FDA-Public Use
  Company Number: PHEH2019US028896

PATIENT
  Age: 93 Year
  Sex: Male

DRUGS (1)
  1. TRAVATAN Z [Suspect]
     Active Substance: TRAVOPROST
     Indication: GLAUCOMA
     Dosage: UNK
     Route: 065
     Dates: start: 201406

REACTIONS (2)
  - Death [Fatal]
  - Dementia [Unknown]

NARRATIVE: CASE EVENT DATE: 20190531
